FAERS Safety Report 4955429-X (Version None)
Quarter: 2006Q1

REPORT INFORMATION
  Report Type: 
  Country: None (occurrence: None)
  Receive Date: 20060328
  Receipt Date: 20060320
  Transmission Date: 20060701
  Serious: Yes (Hospitalization, Other)
  Sender: FDA-Public Use
  Company Number: DE-GILEAD-2006-0009335

PATIENT
  Sex: Male
  Weight: 73.1 kg

DRUGS (14)
  1. VIREAD [Suspect]
     Indication: HIV INFECTION
     Dates: start: 20050401, end: 20051216
  2. EMTRIVA [Suspect]
     Indication: HIV INFECTION
     Dates: start: 20050401
  3. TMC114 [Concomitant]
     Indication: HIV INFECTION
     Route: 048
     Dates: start: 20050401
  4. RITONAVIR [Concomitant]
     Route: 048
     Dates: start: 20050401
  5. ENFUVIRTIDE [Concomitant]
     Route: 058
     Dates: start: 20050401
  6. NEXIUM [Concomitant]
     Indication: GASTRITIS
     Route: 048
     Dates: start: 20050721
  7. DARAPRIM [Concomitant]
     Indication: ANTIBIOTIC PROPHYLAXIS
     Route: 048
  8. LOPERAMIDE [Concomitant]
     Indication: DIARRHOEA
     Route: 048
  9. FLUCONAZOLE [Concomitant]
     Indication: ANTIFUNGAL PROPHYLAXIS
     Route: 048
  10. DICLOFENAC [Concomitant]
     Indication: BACK PAIN
     Route: 054
     Dates: start: 20050929
  11. TADALAFIL [Concomitant]
     Indication: ERECTILE DYSFUNCTION
     Route: 048
     Dates: start: 20051024
  12. UNAZID [Concomitant]
     Indication: CATHETER RELATED INFECTION
  13. DIFLUCAN [Concomitant]
     Indication: ORAL CANDIDIASIS
  14. DIGITOXIN TAB [Concomitant]

REACTIONS (2)
  - CONGESTIVE CARDIOMYOPATHY [None]
  - RENAL FAILURE [None]
